FAERS Safety Report 8949447 (Version 1)
Quarter: 2012Q4

REPORT INFORMATION
  Report Type: 
  Country: US (occurrence: US)
  Receive Date: 20121206
  Receipt Date: 20121206
  Transmission Date: 20130627
  Serious: Yes (Other)
  Sender: FDA-Public Use
  Company Number: US-PFIZER INC-2012301617

PATIENT
  Age: 60 Year
  Sex: Female
  Weight: 72.56 kg

DRUGS (8)
  1. TOVIAZ [Suspect]
     Indication: OVERACTIVE BLADDER
     Dosage: 4 mg, daily
     Route: 048
     Dates: start: 20121119, end: 20121120
  2. VERAPAMIL [Concomitant]
     Indication: BLOOD PRESSURE HIGH
     Dosage: 360 mg, daily
  3. SPIRONOLACTONE [Concomitant]
     Indication: BLOOD PRESSURE HIGH
     Dosage: 25 mg,daily
  4. CATAFLAM [Concomitant]
     Indication: ARTHRITIS
     Dosage: 50 mg, 2x/day
  5. DILAUDID [Concomitant]
     Indication: ARTHRITIS
     Dosage: 2 mg, UNK
  6. TYLENOL [Concomitant]
     Indication: ARTHRITIS
     Dosage: 5 mg,daily
  7. LEVOTHYROXINE [Concomitant]
     Indication: HYPOTHYROIDISM
     Dosage: 0.05 mg,daily
  8. LYRICA [Concomitant]
     Dosage: 50 mg, 3x/day

REACTIONS (2)
  - Dystonia [Not Recovered/Not Resolved]
  - Blister [Recovered/Resolved]
